FAERS Safety Report 25866248 (Version 1)
Quarter: 2025Q3

REPORT INFORMATION
  Report Type: Spontaneous
  Country: JP (occurrence: JP)
  Receive Date: 20250930
  Receipt Date: 20250930
  Transmission Date: 20251021
  Serious: Yes (Life-Threatening, Other)
  Sender: PFIZER
  Company Number: JP-PFIZER INC-PV202500116220

PATIENT
  Age: 50 Year
  Sex: Male
  Weight: 71 kg

DRUGS (5)
  1. LORBRENA [Suspect]
     Active Substance: LORLATINIB
     Indication: Lung adenocarcinoma
     Route: 048
     Dates: start: 20250625, end: 20250630
  2. LORBRENA [Suspect]
     Active Substance: LORLATINIB
     Dosage: 3 TABLETS(75 MG), 1X/DAY
     Route: 048
     Dates: start: 20250707, end: 20250909
  3. URSODIOL [Concomitant]
     Active Substance: URSODIOL
     Dosage: 1.5 TABLETS IN 3 DIVIDED DOSES
     Route: 048
     Dates: start: 20250705
  4. LEVOCETIRIZINE HYDROCHLORIDE [Concomitant]
     Active Substance: LEVOCETIRIZINE HYDROCHLORIDE
     Dosage: 5 MG, 1X/DAY
     Route: 048
     Dates: start: 20250704
  5. LANSOPRAZOLE [Concomitant]
     Active Substance: LANSOPRAZOLE
     Dosage: 15 MG, 1X/DAY
     Route: 048
     Dates: start: 20211101

REACTIONS (2)
  - Hypertriglyceridaemia [Recovering/Resolving]
  - Liver disorder [Recovering/Resolving]

NARRATIVE: CASE EVENT DATE: 20250630
